FAERS Safety Report 12838859 (Version 1)
Quarter: 2016Q4

REPORT INFORMATION
  Report Type: Spontaneous
  Country: US (occurrence: US)
  Receive Date: 20161010
  Receipt Date: 20161010
  Transmission Date: 20170207
  Serious: Yes (Other)
  Sender: FDA-Public Use
  Company Number: None

PATIENT
  Age: 28 Year
  Weight: 67.5 kg

DRUGS (5)
  1. SINGULAIR [Concomitant]
     Active Substance: MONTELUKAST SODIUM
  2. NEBULIZER [Concomitant]
     Active Substance: DEVICE
  3. BIRTH CONTROL [Concomitant]
     Active Substance: UNSPECIFIED INGREDIENT
  4. VIVITROL [Suspect]
     Active Substance: NALTREXONE
     Indication: DRUG DEPENDENCE
     Dosage: ?          QUANTITY:1 INJECTION(S);OTHER FREQUENCY:EVERY 4 WKS;?
     Route: 030
  5. ALBUTEROL. [Concomitant]
     Active Substance: ALBUTEROL

REACTIONS (4)
  - Injection site mass [None]
  - Injection site bruising [None]
  - Needle issue [None]
  - Injection site pain [None]

NARRATIVE: CASE EVENT DATE: 20161006
